FAERS Safety Report 21801752 (Version 3)
Quarter: 2023Q1

REPORT INFORMATION
  Report Type: Report from Study
  Country: US (occurrence: US)
  Receive Date: 20221230
  Receipt Date: 20230210
  Transmission Date: 20230417
  Serious: Yes (Other)
  Sender: FDA-Public Use
  Company Number: US-ABBVIE-4221310

PATIENT
  Age: 62 Year
  Sex: Female
  Weight: 67.1 kg

DRUGS (8)
  1. HUMIRA [Suspect]
     Active Substance: ADALIMUMAB
     Indication: Crohn^s disease
     Dosage: CITRATE FREE
     Route: 058
     Dates: start: 202111
  2. HUMIRA [Suspect]
     Active Substance: ADALIMUMAB
     Indication: Rheumatoid arthritis
     Dosage: CF
     Route: 058
  3. METHOTREXATE [Concomitant]
     Active Substance: METHOTREXATE
     Indication: Rheumatoid arthritis
  4. FOLIC ACID [Concomitant]
     Active Substance: FOLIC ACID
     Indication: Product used for unknown indication
  5. ROSUVASTATIN [Concomitant]
     Active Substance: ROSUVASTATIN
     Indication: Blood cholesterol increased
  6. NADOLOL [Concomitant]
     Active Substance: NADOLOL
     Indication: Long QT syndrome
  7. FISH OIL [Concomitant]
     Active Substance: FISH OIL
     Indication: Supplementation therapy
  8. CALCIUM [Concomitant]
     Active Substance: CALCIUM
     Indication: Supplementation therapy

REACTIONS (8)
  - Dysplastic naevus [Recovered/Resolved]
  - Staphylococcal infection [Recovered/Resolved]
  - Acne [Not Recovered/Not Resolved]
  - Skin disorder [Unknown]
  - Ingrown hair [Recovering/Resolving]
  - Dry skin [Unknown]
  - Rash pruritic [Recovering/Resolving]
  - Inguinal mass [Unknown]

NARRATIVE: CASE EVENT DATE: 20220201
